FAERS Safety Report 5315612-0 (Version None)
Quarter: 2007Q2

REPORT INFORMATION
  Report Type: 
  Country: None (occurrence: None)
  Receive Date: 20070503
  Receipt Date: 20070423
  Transmission Date: 20071010
  Serious: Yes (Other)
  Sender: FDA-Public Use
  Company Number: US-GENENTECH-238344

PATIENT
  Sex: Female
  Weight: 136.5 kg

DRUGS (11)
  1. NUTROPIN [Suspect]
     Indication: GROWTH HORMONE DEFICIENCY
     Dosage: 0.4 MG, QD
     Route: 058
     Dates: start: 20070105
  2. PULMICORT NEBULIZER [Concomitant]
     Indication: DRUG USE FOR UNKNOWN INDICATION
  3. IPRATROPIUM BROMIDE NEBULIZER [Concomitant]
     Indication: DRUG USE FOR UNKNOWN INDICATION
  4. REQUIP [Concomitant]
     Indication: DRUG USE FOR UNKNOWN INDICATION
  5. K-DUR 10 [Concomitant]
     Indication: DRUG USE FOR UNKNOWN INDICATION
  6. ELAVIL [Concomitant]
     Indication: DRUG USE FOR UNKNOWN INDICATION
  7. VICODIN [Concomitant]
     Indication: DRUG USE FOR UNKNOWN INDICATION
  8. FOSAMAX [Concomitant]
     Indication: DRUG USE FOR UNKNOWN INDICATION
  9. PREDNISONE TAB [Concomitant]
     Indication: DRUG USE FOR UNKNOWN INDICATION
  10. LASIX [Concomitant]
     Indication: DRUG USE FOR UNKNOWN INDICATION
  11. TRAMADOL HCL [Concomitant]
     Indication: DRUG USE FOR UNKNOWN INDICATION

REACTIONS (7)
  - ARTHRALGIA [None]
  - DRUG INEFFECTIVE [None]
  - JOINT RANGE OF MOTION DECREASED [None]
  - JOINT SWELLING [None]
  - MEAN CELL VOLUME INCREASED [None]
  - PARAESTHESIA [None]
  - PERIPHERAL COLDNESS [None]
